FAERS Safety Report 6349452-0 (Version None)
Quarter: 2009Q3

REPORT INFORMATION
  Report Type: 
  Country: None (occurrence: None)
  Receive Date: 20090911
  Receipt Date: 20090903
  Transmission Date: 20100115
  Serious: Yes (Hospitalization)
  Sender: FDA-Public Use
  Company Number: GB-ABBOTT-09P-167-0595136-00

PATIENT
  Sex: Female

DRUGS (2)
  1. HUMIRA [Suspect]
     Indication: RHEUMATOID ARTHRITIS
     Dosage: TEMPORARY STOP WHILE IN HOSPITAL NO DATES GIVEN
     Route: 058
     Dates: start: 20050708
  2. DICLOFENAC SODIUM [Concomitant]
     Indication: DRUG USE FOR UNKNOWN INDICATION
     Dosage: BASELINE MEDICATION 10-DEC-2002
     Dates: start: 20021210

REACTIONS (2)
  - DIARRHOEA [None]
  - DIVERTICULITIS [None]
